FAERS Safety Report 7601740-3 (Version None)
Quarter: 2011Q2

REPORT INFORMATION
  Report Type: 
  Country: None (occurrence: None)
  Receive Date: 20110630
  Receipt Date: 20110624
  Transmission Date: 20111010
  Serious: Yes (Death)
  Sender: FDA-Public Use
  Company Number: 1000021787

PATIENT
  Age: 22 Year
  Sex: Male

DRUGS (4)
  1. NORDIAZEPAM (NORDAZEPAM) [Suspect]
  2. DIAZEPAM [Suspect]
  3. OXYCODONE HCL [Suspect]
  4. ESCITALOPRAM OXALATE [Suspect]

REACTIONS (2)
  - ASPIRATION [None]
  - TOXICITY TO VARIOUS AGENTS [None]
